FAERS Safety Report 11808455 (Version 1)
Quarter: 2015Q4

REPORT INFORMATION
  Report Type: Spontaneous
  Country: US (occurrence: US)
  Receive Date: 20151207
  Receipt Date: 20151207
  Transmission Date: 20160305
  Serious: No
  Sender: FDA-Public Use
  Company Number: US-ROCHE-1614946

PATIENT
  Sex: Female

DRUGS (2)
  1. ACTEMRA [Suspect]
     Active Substance: TOCILIZUMAB
     Indication: SYSTEMIC LUPUS ERYTHEMATOSUS
  2. ACTEMRA [Suspect]
     Active Substance: TOCILIZUMAB
     Indication: RHEUMATOID ARTHRITIS
     Route: 065

REACTIONS (1)
  - Joint dislocation [Unknown]
